FAERS Safety Report 16509839 (Version 3)
Quarter: 2019Q4

REPORT INFORMATION
  Report Type: Spontaneous
  Country: US (occurrence: US)
  Receive Date: 20190701
  Receipt Date: 20191118
  Transmission Date: 20200122
  Serious: No
  Sender: FDA-Public Use
  Company Number: US-TEVA-2019-US-1067999

PATIENT
  Sex: Male

DRUGS (11)
  1. TESTOSTERONE GEL [Suspect]
     Active Substance: TESTOSTERONE
     Indication: BLOOD TESTOSTERONE ABNORMAL
     Route: 061
  2. VALTIUM [Concomitant]
  3. FORTESTA [Concomitant]
     Active Substance: TESTOSTERONE
     Dosage: 8 PUMPS PER DAY
  4. CELEBREX [Concomitant]
     Active Substance: CELECOXIB
  5. XANAX [Concomitant]
     Active Substance: ALPRAZOLAM
  6. TRAZODONE [Concomitant]
     Active Substance: TRAZODONE HYDROCHLORIDE
  7. ACTAVIS TESTOSTERONE GEL [Suspect]
     Active Substance: TESTOSTERONE
     Indication: BLOOD TESTOSTERONE ABNORMAL
     Dosage: 8 PUMPS/DAY
     Route: 065
     Dates: start: 20190408, end: 20190601
  8. ACTAVIS TESTOSTERONE GEL [Suspect]
     Active Substance: TESTOSTERONE
     Indication: BLOOD TESTOSTERONE DECREASED
  9. SYNTHROID [Concomitant]
     Active Substance: LEVOTHYROXINE SODIUM
  10. TESTOSTERONE GEL [Suspect]
     Active Substance: TESTOSTERONE
     Indication: BLOOD TESTOSTERONE DECREASED
  11. RESTORIL [Concomitant]
     Active Substance: TEMAZEPAM

REACTIONS (8)
  - Drug ineffective [Unknown]
  - Fatigue [Recovered/Resolved]
  - Malaise [Recovered/Resolved]
  - Asthenia [Recovered/Resolved]
  - Somnolence [Recovered/Resolved]
  - Product substitution issue [Unknown]
  - Influenza like illness [Unknown]
  - Blood testosterone decreased [Recovered/Resolved]
